FAERS Safety Report 21478767 (Version 1)
Quarter: 2022Q4

REPORT INFORMATION
  Report Type: Spontaneous
  Country: US (occurrence: US)
  Receive Date: 20221019
  Receipt Date: 20221019
  Transmission Date: 20230112
  Serious: No
  Sender: FDA-Public Use
  Company Number: US-BRISTOL-MYERS SQUIBB COMPANY-2022-123732

PATIENT
  Age: 43 Year
  Sex: Male

DRUGS (2)
  1. ZEPOSIA [Suspect]
     Active Substance: OZANIMOD HYDROCHLORIDE
     Indication: Multiple sclerosis
     Route: 048
  2. MIDAZOLAM HCL/NACL [Concomitant]
     Indication: Product used for unknown indication
     Route: 065

REACTIONS (1)
  - Product dose omission issue [Unknown]
